FAERS Safety Report 12803693 (Version 1)
Quarter: 2016Q4

REPORT INFORMATION
  Report Type: Other
  Country: GR (occurrence: GR)
  Receive Date: 20161003
  Receipt Date: 20161003
  Transmission Date: 20170207
  Serious: Yes (Hospitalization)
  Sender: FDA-Public Use
  Company Number: GR-EMD SERONO-8109601

PATIENT
  Age: 53 Year
  Sex: Female

DRUGS (6)
  1. INTERFERON BETA-1A [Suspect]
     Active Substance: INTERFERON BETA-1A
     Dosage: RESTARTED AFTER FOUR WEEKS OF DISCONTINUATION.
  2. AZATHIOPRINE. [Suspect]
     Active Substance: AZATHIOPRINE
     Dosage: RESTARTED AFTER FOUR WEEKS OF DISCONTINUATION.
  3. GABAPENTIN. [Suspect]
     Active Substance: GABAPENTIN
     Indication: MULTIPLE SCLEROSIS
  4. GABAPENTIN. [Suspect]
     Active Substance: GABAPENTIN
     Dosage: RESTARTED AFTER FOUR WEEKS OF DISCONTINUATION.
  5. AZATHIOPRINE. [Suspect]
     Active Substance: AZATHIOPRINE
     Indication: MULTIPLE SCLEROSIS
  6. INTERFERON BETA-1A [Suspect]
     Active Substance: INTERFERON BETA-1A
     Indication: MULTIPLE SCLEROSIS

REACTIONS (1)
  - Chronic spontaneous urticaria [Recovered/Resolved]
